FAERS Safety Report 10009970 (Version 2)
Quarter: 2014Q1

REPORT INFORMATION
  Report Type: Spontaneous
  Country: US (occurrence: US)
  Receive Date: 20140312
  Receipt Date: 20140312
  Transmission Date: 20141002
  Serious: No
  Sender: FDA-Public Use
  Company Number: US-INCYTE CORPORATION-2013IN000916

PATIENT
  Age: 72 Year
  Sex: Male

DRUGS (5)
  1. JAKAFI [Suspect]
     Indication: MYELOFIBROSIS
     Dosage: 10 MG, BID
     Route: 048
     Dates: start: 20130301, end: 2013
  2. LEVOTHYROXINE [Concomitant]
  3. BABY ASPIRIN [Concomitant]
     Dosage: 81 MG, UNK
  4. FISH OIL [Concomitant]
  5. MVI [Concomitant]

REACTIONS (2)
  - Diarrhoea [Recovering/Resolving]
  - Anaemia [Unknown]
